FAERS Safety Report 8920828 (Version 1)
Quarter: 2012Q4

REPORT INFORMATION
  Report Type: 
  Country: JP (occurrence: JP)
  Receive Date: 20121121
  Receipt Date: 20121121
  Transmission Date: 20130627
  Serious: Yes (Other)
  Sender: FDA-Public Use
  Company Number: JP-MERCK-1210JPN011100

PATIENT
  Age: 70 Year
  Sex: Female

DRUGS (4)
  1. BONALON [Suspect]
     Indication: OSTEOPOROSIS
     Dosage: 35 mg, qw
     Route: 048
     Dates: start: 20120912, end: 20121009
  2. VIVIANT [Concomitant]
     Indication: OSTEOPOROSIS
     Dosage: 20 mg, qd
     Route: 048
     Dates: end: 20120911
  3. LOXONIN [Concomitant]
     Indication: PAIN
     Dosage: 180 mg, qd
     Route: 048
  4. REBAMIPIDE [Concomitant]
     Indication: GASTRITIS PROPHYLAXIS
     Dosage: 300 mg, qd
     Route: 048

REACTIONS (1)
  - Blood pressure abnormal [Recovered/Resolved]
